FAERS Safety Report 5069881-5 (Version None)
Quarter: 2006Q3

REPORT INFORMATION
  Report Type: 
  Country: None (occurrence: None)
  Receive Date: 20060803
  Receipt Date: 20060724
  Transmission Date: 20061208
  Serious: Yes (Other)
  Sender: FDA-Public Use
  Company Number: JP-BRISTOL-MYERS SQUIBB COMPANY-13461140

PATIENT
  Age: 65 Year
  Sex: Female

DRUGS (9)
  1. GATIFLOXACIN [Suspect]
     Indication: INFECTION PARASITIC
     Route: 048
  2. ISCOTIN NEO [Concomitant]
  3. THEOLONG [Concomitant]
     Route: 048
  4. LIPITOR [Concomitant]
     Route: 048
  5. AZELASTINE HCL [Concomitant]
     Route: 048
  6. AMLODIN [Concomitant]
     Route: 048
  7. MUCOSTA [Concomitant]
     Route: 048
  8. GASTER D [Concomitant]
     Route: 048
  9. LASIX [Concomitant]

REACTIONS (1)
  - HYPERGLYCAEMIA [None]
